FAERS Safety Report 4428309-6 (Version None)
Quarter: 2004Q3

REPORT INFORMATION
  Report Type: 
  Country: None (occurrence: None)
  Receive Date: 20040818
  Receipt Date: 20040806
  Transmission Date: 20050211
  Serious: Yes (Death)
  Sender: FDA-Public Use
  Company Number: US-JNJFOC-20040802291

PATIENT
  Sex: Female

DRUGS (21)
  1. INFLIXIMAB [Suspect]
     Indication: RHEUMATOID ARTHRITIS
     Route: 042
  2. METHOTREXATE [Concomitant]
  3. IRON SUPPLEMENT [Concomitant]
  4. MOBIC [Concomitant]
  5. PRILOSEC [Concomitant]
  6. ENALAPRIL MALEATE [Concomitant]
  7. ASPIRIN [Concomitant]
  8. AMARYL [Concomitant]
  9. PREDNISONE [Concomitant]
  10. TYLENOL [Concomitant]
  11. LIPITOR [Concomitant]
  12. VITAMIN C [Concomitant]
  13. VITAMIN E [Concomitant]
  14. MULTI-VITAMIN [Concomitant]
  15. MULTI-VITAMIN [Concomitant]
  16. MULTI-VITAMIN [Concomitant]
  17. MULTI-VITAMIN [Concomitant]
  18. MULTI-VITAMIN [Concomitant]
  19. MULTI-VITAMIN [Concomitant]
  20. MULTI-VITAMIN [Concomitant]
  21. MULTI-VITAMIN [Concomitant]

REACTIONS (1)
  - DEATH [None]
